FAERS Safety Report 19144454 (Version 1)
Quarter: 2021Q2

REPORT INFORMATION
  Report Type: Spontaneous
  Country: GB (occurrence: GB)
  Receive Date: 20210416
  Receipt Date: 20210416
  Transmission Date: 20210717
  Serious: Yes (Other)
  Sender: FDA-Public Use
  Company Number: GB-TEVA-2021-GB-1900485

PATIENT
  Age: 45 Year
  Sex: Female
  Weight: 58 kg

DRUGS (1)
  1. TEVA UK LEVOTHYROXINE [Suspect]
     Active Substance: LEVOTHYROXINE
     Indication: AUTOIMMUNE THYROIDITIS
     Dosage: 50 MCG
     Route: 048
     Dates: start: 20210402, end: 20210404

REACTIONS (11)
  - Throat irritation [Recovering/Resolving]
  - Dry eye [Recovering/Resolving]
  - Nausea [Recovering/Resolving]
  - Gastrointestinal pain [Recovering/Resolving]
  - Dyspepsia [Recovering/Resolving]
  - Disorientation [Recovering/Resolving]
  - Diarrhoea [Recovering/Resolving]
  - Pain [Recovering/Resolving]
  - Emotional disorder [Recovering/Resolving]
  - Dry mouth [Recovering/Resolving]
  - Headache [Recovering/Resolving]

NARRATIVE: CASE EVENT DATE: 20210403
